FAERS Safety Report 23724775 (Version 1)
Quarter: 2024Q2

REPORT INFORMATION
  Report Type: Spontaneous
  Country: US (occurrence: US)
  Receive Date: 20240409
  Receipt Date: 20240409
  Transmission Date: 20240716
  Serious: Yes (Other)
  Sender: FDA-Public Use
  Company Number: US-BRISTOL-MYERS SQUIBB COMPANY-2024-049906

PATIENT
  Age: 65 Year
  Sex: Male

DRUGS (1)
  1. POMALYST [Suspect]
     Active Substance: POMALIDOMIDE
     Indication: Plasma cell myeloma
     Dosage: TAKE 1 CAPSULE BY MOUTH WHOLE WITH WATER, 2 HOURS AWAY FROM FOOD, AT SAME TIME DAILY FOR 21 DAYS, TH
     Route: 048

REACTIONS (3)
  - Lymphadenopathy [Recovering/Resolving]
  - Nasopharyngitis [Unknown]
  - Productive cough [Unknown]
